FAERS Safety Report 25585666 (Version 1)
Quarter: 2025Q3

REPORT INFORMATION
  Report Type: Spontaneous
  Country: ZA (occurrence: ZA)
  Receive Date: 20250721
  Receipt Date: 20250721
  Transmission Date: 20251020
  Serious: Yes (Hospitalization)
  Sender: PFIZER
  Company Number: ZA-PFIZER INC-PV202500086100

PATIENT
  Age: 40 Year
  Sex: Female

DRUGS (2)
  1. SULFASALAZINE [Suspect]
     Active Substance: SULFASALAZINE
     Dates: start: 202301, end: 202311
  2. LEFLUNOMIDE [Suspect]
     Active Substance: LEFLUNOMIDE
     Dates: start: 202311

REACTIONS (2)
  - Sacroiliitis [Unknown]
  - Drug ineffective [Unknown]
